FAERS Safety Report 7803104-6 (Version None)
Quarter: 2011Q4

REPORT INFORMATION
  Report Type: 
  Country: None (occurrence: None)
  Receive Date: 20111007
  Receipt Date: 20110928
  Transmission Date: 20120403
  Serious: Yes (Other)
  Sender: FDA-Public Use
  Company Number: GR-JNJFOC-20110411378

PATIENT
  Age: 41 Year
  Sex: Male
  Weight: 96 kg

DRUGS (3)
  1. TANATRIL [Concomitant]
     Indication: HYPERTENSION
     Dates: start: 20070101
  2. REMICADE [Suspect]
     Indication: PSORIASIS
     Route: 042
     Dates: start: 20100120
  3. REMICADE [Suspect]
     Dosage: 2ND INFUSION ON AN UNSPECIFIED DATE
     Route: 042
     Dates: start: 20100101, end: 20100203

REACTIONS (1)
  - TUBERCULIN TEST POSITIVE [None]
